FAERS Safety Report 24366673 (Version 1)
Quarter: 2024Q3

REPORT INFORMATION
  Report Type: Other
  Country: MG (occurrence: MG)
  Receive Date: 20240926
  Receipt Date: 20240926
  Transmission Date: 20241016
  Serious: Yes (Hospitalization, Other)
  Sender: BIONPHARMA
  Company Number: MG-Bion-013893

PATIENT
  Age: 37 Year
  Sex: Male

DRUGS (1)
  1. DEXAMETHASONE [Suspect]
     Active Substance: DEXAMETHASONE
     Indication: Brain oedema
     Dosage: HIGH DOSE

REACTIONS (4)
  - Bradycardia [Recovered/Resolved]
  - Hypotension [Unknown]
  - Hypothermia [Unknown]
  - Upper gastrointestinal haemorrhage [Unknown]
